FAERS Safety Report 7302319-3 (Version None)
Quarter: 2011Q1

REPORT INFORMATION
  Report Type: 
  Country: None (occurrence: None)
  Receive Date: 20110218
  Receipt Date: 20110214
  Transmission Date: 20110831
  Serious: Yes (Death)
  Sender: FDA-Public Use
  Company Number: PT-PFIZER INC-2011032240

PATIENT
  Sex: Female

DRUGS (1)
  1. DEPO-MEDROL [Suspect]
     Indication: ROTATOR CUFF SYNDROME
     Dosage: 20 MG, UNK
     Route: 014
     Dates: start: 20100323, end: 20100323

REACTIONS (1)
  - ACUTE MYOCARDIAL INFARCTION [None]
